FAERS Safety Report 7328110-X (Version None)
Quarter: 2011Q1

REPORT INFORMATION
  Report Type: 
  Country: None (occurrence: None)
  Receive Date: 20110303
  Receipt Date: 20110208
  Transmission Date: 20110831
  Serious: Yes (Death)
  Sender: FDA-Public Use
  Company Number: DE-CELGENEUS-062-50794-11021218

PATIENT
  Age: 59 Year
  Sex: Male
  Weight: 69 kg

DRUGS (1)
  1. VIDAZA [Suspect]
     Dosage: 100 MILLIGRAM
     Route: 065
     Dates: start: 20100106, end: 20100110

REACTIONS (1)
  - ACUTE MYELOID LEUKAEMIA [None]
